FAERS Safety Report 24232403 (Version 1)
Quarter: 2024Q3

REPORT INFORMATION
  Report Type: Report from Study
  Country: CA (occurrence: CA)
  Receive Date: 20240821
  Receipt Date: 20240821
  Transmission Date: 20241017
  Serious: Yes (Other)
  Sender: NOVARTIS
  Company Number: CA-002147023-NVSC2024CA167281

PATIENT
  Age: 57 Year
  Sex: Male

DRUGS (1)
  1. LEQVIO [Suspect]
     Active Substance: INCLISIRAN SODIUM
     Indication: Arteriosclerosis
     Dosage: 284 MG, OTHER (BASELINE, 3 MONTHS AND Q6 MONTHS THEREAFTER)
     Route: 058
     Dates: start: 20230624

REACTIONS (1)
  - Diabetes mellitus [Unknown]
